FAERS Safety Report 4564418-9 (Version None)
Quarter: 2005Q1

REPORT INFORMATION
  Report Type: 
  Country: None (occurrence: None)
  Receive Date: 20050128
  Receipt Date: 20040209
  Transmission Date: 20050727
  Serious: No
  Sender: FDA-Public Use
  Company Number: US-GLAXOSMITHKLINE-A0497206A

PATIENT
  Age: 62 Year
  Sex: Male

DRUGS (9)
  1. EPIVIR [Suspect]
     Indication: HIV INFECTION
     Dosage: 300MG PER DAY
     Route: 048
  2. PROTONIX [Concomitant]
  3. SUCRALFATE [Concomitant]
  4. DIFLUCAN [Concomitant]
  5. NORVASC [Concomitant]
  6. BACTRIM [Concomitant]
  7. CYTOTEC [Concomitant]
     Route: 065
  8. TYLENOL [Concomitant]
  9. MULTI-VITAMINS [Concomitant]

REACTIONS (1)
  - DYSPNOEA [None]
